FAERS Safety Report 5958805-1 (Version None)
Quarter: 2008Q4

REPORT INFORMATION
  Report Type: 
  Country: None (occurrence: None)
  Receive Date: 20081110
  Receipt Date: 20080716
  Transmission Date: 20090506
  Serious: No
  Sender: FDA-Public Use
  Company Number: 2008US001882

PATIENT

DRUGS (1)
  1. LEXISCAN [Suspect]
     Indication: SCAN MYOCARDIAL PERFUSION

REACTIONS (1)
  - BLOOD PRESSURE SYSTOLIC DECREASED [None]
